FAERS Safety Report 22275828 (Version 2)
Quarter: 2024Q3

REPORT INFORMATION
  Report Type: Spontaneous
  Country: US (occurrence: US)
  Receive Date: 20230502
  Receipt Date: 20240829
  Transmission Date: 20241016
  Serious: No
  Sender: SANOFI AVENTIS
  Company Number: US-SA-SAC20230427001040

PATIENT
  Sex: Male

DRUGS (1)
  1. DUPIXENT [Suspect]
     Active Substance: DUPILUMAB
     Indication: Nasal polyps
     Dosage: 300 MG, Q3W
     Route: 065

REACTIONS (2)
  - Injection site swelling [Unknown]
  - Off label use [Unknown]
